FAERS Safety Report 9250263 (Version 1)
Quarter: 2013Q2

REPORT INFORMATION
  Report Type: Spontaneous
  Country: US (occurrence: US)
  Receive Date: 20130424
  Receipt Date: 20130424
  Transmission Date: 20140414
  Serious: Yes (Other)
  Sender: FDA-Public Use
  Company Number: US-RANBAXY-2013US-67633

PATIENT
  Sex: Female

DRUGS (1)
  1. ACETAMINOPHEN [Suspect]
     Indication: ARTHRITIS
     Dosage: 650 MG, QID
     Route: 065

REACTIONS (4)
  - Inappropriate schedule of drug administration [Unknown]
  - Tinnitus [Unknown]
  - Blood pressure increased [Unknown]
  - Insomnia [Unknown]
